FAERS Safety Report 20339972 (Version 3)
Quarter: 2022Q1

REPORT INFORMATION
  Report Type: Spontaneous
  Country: US (occurrence: None)
  Receive Date: 20220117
  Receipt Date: 20220311
  Transmission Date: 20220423
  Serious: No
  Sender: FDA-Public Use
  Company Number: 2021A908434

PATIENT
  Age: 31434 Day
  Sex: Female
  Weight: 59 kg

DRUGS (4)
  1. BUDESONIDE\FORMOTEROL\GLYCOPYRRONIUM [Suspect]
     Active Substance: BUDESONIDE\FORMOTEROL\GLYCOPYRRONIUM
     Indication: Pulmonary hypertension
     Dosage: 160/9/4.8MCG, 2 PUFFS, TWICE A DAY
     Route: 055
     Dates: start: 20211218
  2. BUDESONIDE\FORMOTEROL\GLYCOPYRRONIUM [Suspect]
     Active Substance: BUDESONIDE\FORMOTEROL\GLYCOPYRRONIUM
     Indication: Dyspnoea
     Dosage: 160/9/4.8MCG, 2 PUFFS, TWICE A DAY
     Route: 055
     Dates: start: 20211218
  3. ELIQUIS [Concomitant]
     Active Substance: APIXABAN
  4. ALBUTEROL [Concomitant]
     Active Substance: ALBUTEROL

REACTIONS (6)
  - Oropharyngeal pain [Recovering/Resolving]
  - General physical condition abnormal [Unknown]
  - Chest discomfort [Recovering/Resolving]
  - Wrong technique in product usage process [Unknown]
  - Product dose omission issue [Unknown]
  - Device delivery system issue [Unknown]

NARRATIVE: CASE EVENT DATE: 20211218
